FAERS Safety Report 9943175 (Version 1)
Quarter: 2014Q1

REPORT INFORMATION
  Report Type: Spontaneous
  Country: US (occurrence: US)
  Receive Date: 20140303
  Receipt Date: 20140303
  Transmission Date: 20141002
  Serious: Yes (Other)
  Sender: FDA-Public Use
  Company Number: CHPA2014US003178

PATIENT
  Age: 81 Year
  Sex: Female

DRUGS (2)
  1. ACETYLSALICYLIC ACID [Suspect]
     Indication: SPINAL PAIN
     Dosage: UNK
     Dates: start: 1999
  2. ACETYLSALICYLIC ACID [Suspect]
     Indication: OFF LABEL USE

REACTIONS (1)
  - Angioedema [Recovered/Resolved]
